FAERS Safety Report 13251747 (Version 4)
Quarter: 2017Q2

REPORT INFORMATION
  Report Type: Spontaneous
  Country: US (occurrence: US)
  Receive Date: 20170220
  Receipt Date: 20170529
  Transmission Date: 20170830
  Serious: No
  Sender: FDA-Public Use
  Company Number: US-PFIZER INC-2017066661

PATIENT
  Age: 60 Year
  Sex: Male

DRUGS (4)
  1. CREON [Concomitant]
     Active Substance: PANCRELIPASE AMYLASE\PANCRELIPASE LIPASE\PANCRELIPASE PROTEASE
     Dosage: UNK
  2. PEPCID [Concomitant]
     Active Substance: FAMOTIDINE
     Dosage: UNK
  3. SUTENT [Suspect]
     Active Substance: SUNITINIB MALATE
     Indication: GASTROINTESTINAL STROMAL TUMOUR
     Dosage: 37.5 MG, CYCLIC (ONCE DAILY FOR 28 DAYS) AS DIRECTED
     Route: 048
     Dates: start: 20160126
  4. SUTENT [Suspect]
     Active Substance: SUNITINIB MALATE
     Dosage: 37.5 MG, DAILY
     Dates: start: 20160207

REACTIONS (6)
  - Diarrhoea [Unknown]
  - Dysgeusia [Unknown]
  - Weight gain poor [Unknown]
  - Nausea [Unknown]
  - Weight decreased [Unknown]
  - Dyspepsia [Unknown]
